FAERS Safety Report 13602913 (Version 1)
Quarter: 2017Q2

REPORT INFORMATION
  Report Type: Spontaneous
  Country: HR (occurrence: HR)
  Receive Date: 20170601
  Receipt Date: 20170601
  Transmission Date: 20170830
  Serious: Yes (Other)
  Sender: FDA-Public Use
  Company Number: PHHY2017HR079375

PATIENT
  Age: 27 Month
  Sex: Female
  Weight: 13 kg

DRUGS (1)
  1. VOLTAREN [Suspect]
     Active Substance: DICLOFENAC SODIUM
     Indication: PYREXIA
     Dosage: 50 MG, UNK
     Route: 054
     Dates: start: 20130316, end: 20130316

REACTIONS (3)
  - Incorrect dose administered [Unknown]
  - Product label confusion [Unknown]
  - Accidental overdose [Unknown]

NARRATIVE: CASE EVENT DATE: 2013
